FAERS Safety Report 16880354 (Version 1)
Quarter: 2019Q4

REPORT INFORMATION
  Report Type: Spontaneous
  Country: US (occurrence: US)
  Receive Date: 20191002
  Receipt Date: 20191002
  Transmission Date: 20200122
  Serious: No
  Sender: FDA-Public Use
  Company Number: None

PATIENT
  Age: 32 Year
  Sex: Female
  Weight: 51.26 kg

DRUGS (1)
  1. NEXPLANON [Suspect]
     Active Substance: ETONOGESTREL
     Dates: start: 20190926

REACTIONS (5)
  - Swelling [None]
  - Arthralgia [None]
  - Anxiety [None]
  - Depression [None]
  - Metrorrhagia [None]

NARRATIVE: CASE EVENT DATE: 20190926
